FAERS Safety Report 18690277 (Version 1)
Quarter: 2020Q4

REPORT INFORMATION
  Report Type: Spontaneous
  Country: US (occurrence: US)
  Receive Date: 20201231
  Receipt Date: 20201231
  Transmission Date: 20210114
  Serious: Yes (Other)
  Sender: FDA-Public Use
  Company Number: US-SYNEX-T202006048

PATIENT
  Age: 5 Month
  Sex: Male
  Weight: 5 kg

DRUGS (2)
  1. INOMAX [Suspect]
     Active Substance: NITRIC OXIDE
     Dosage: 40 PPM, (INHALATION)
     Route: 055
     Dates: start: 20201216
  2. INOMAX [Suspect]
     Active Substance: NITRIC OXIDE
     Indication: PULMONARY HYPERTENSION
     Dosage: 20 PPM, (INHALATION)
     Route: 055
     Dates: start: 20201215, end: 20201215

REACTIONS (2)
  - Device issue [None]
  - Neonatal hypoxia [Recovered/Resolved]

NARRATIVE: CASE EVENT DATE: 20201221
